FAERS Safety Report 19036196 (Version 1)
Quarter: 2021Q1

REPORT INFORMATION
  Report Type: Spontaneous
  Country: US (occurrence: US)
  Receive Date: 20210320
  Receipt Date: 20210320
  Transmission Date: 20210420
  Serious: No
  Sender: FDA-Public Use
  Company Number: None

PATIENT
  Age: 29 Year
  Sex: Female
  Weight: 58.5 kg

DRUGS (3)
  1. NIZORAL [Suspect]
     Active Substance: KETOCONAZOLE
  2. ONE CONDITION DECADENCE [Suspect]
     Active Substance: COSMETICS
     Indication: HAIR TEXTURE ABNORMAL
     Dosage: ?          OTHER FREQUENCY:TWICE A WEEK;?
     Route: 061
     Dates: start: 20190820, end: 20200824
  3. NO?POO DECADENCE [Suspect]
     Active Substance: COSMETICS

REACTIONS (1)
  - Alopecia [None]

NARRATIVE: CASE EVENT DATE: 20200824
